FAERS Safety Report 9528244 (Version 2)
Quarter: 2013Q4

REPORT INFORMATION
  Report Type: Spontaneous
  Country: FR (occurrence: None)
  Receive Date: 20130913
  Receipt Date: 20131001
  Transmission Date: 20140711
  Serious: Yes (Other)
  Sender: FDA-Public Use
  Company Number: AUR-APL-2013-07695

PATIENT
  Age: 59 Year
  Sex: Male

DRUGS (15)
  1. OLANZAPINE (OLANZAPINE) [Suspect]
     Indication: DEMENTIA ALZHEIMER^S TYPE
     Dosage: 10 MG (5 MG, 2 IN 1 D), ORAL
     Route: 048
     Dates: start: 201305, end: 201306
  2. SERTRALINE (SERTRALINE) [Suspect]
     Indication: PRODUCT USED FOR UNKNOWN INDICATION
     Route: 048
     Dates: start: 201306, end: 201306
  3. DALACINE (CLINDAMYCIN HYDROCHLORIDE) [Suspect]
     Indication: ERYSIPELAS
     Dosage: 6 DOSAGE FORMS (2 DOSAGE FORMS, 3 IN
     Dates: start: 20130605, end: 20130613
  4. TAZOCILLINE (PIP/TAZO)(2 GM)(PIPERACILLIN SODIUM, TAZOBACTAM SODIUM) [Suspect]
     Indication: ERYSIPELAS
     Route: 042
     Dates: start: 201306, end: 201307
  5. INNOHEP (TINZAPARIN SODIUM) [Suspect]
     Indication: PROPHYLAXIS
     Dosage: 1 DOSAGE FORMS (1 DOSAGE FORMS, 1 IN
     Dates: start: 20130606, end: 20130614
  6. MICROPAKINE (ERGENYL CHRONO) [Suspect]
     Indication: DEMENTIA ALZHEIMER^S TYPE
     Dosage: 14000 IU/O.7ML, (2 DOSAGE FORMS, 2
     Dates: start: 201305, end: 201306
  7. DOLIPRANE (PARACETAMOL) [Concomitant]
  8. TOBREX (TOBRAMYCIN) [Concomitant]
  9. SERESTA (OXAZEPAM) [Concomitant]
  10. ECONAZOLE (ECONAZOLE) [Concomitant]
  11. DUPHALAC (RUDOLAC/01526201/) [Concomitant]
  12. LAROSCORBINE (ASCORBIC ACID) [Concomitant]
  13. VITAMIN D3 (COLECALCIFEROL) [Concomitant]
  14. LOXAPAC (LOXAPINE) [Concomitant]
  15. CLOZAPINE (CLOZAPINE) [Concomitant]

REACTIONS (2)
  - Erythema [None]
  - Rash maculo-papular [None]
